FAERS Safety Report 5567165-X (Version None)
Quarter: 2007Q4

REPORT INFORMATION
  Report Type: 
  Country: None (occurrence: None)
  Receive Date: 20071219
  Receipt Date: 20071213
  Transmission Date: 20080405
  Serious: Yes (Hospitalization, Other)
  Sender: FDA-Public Use
  Company Number: US-ELI_LILLY_AND_COMPANY-US200712002834

PATIENT
  Sex: Female

DRUGS (2)
  1. HUMULIN N [Suspect]
  2. AMITRIPTLINE HCL [Concomitant]

REACTIONS (6)
  - BACK PAIN [None]
  - BLOOD GLUCOSE INCREASED [None]
  - CONFUSIONAL STATE [None]
  - CYSTITIS [None]
  - LOSS OF CONSCIOUSNESS [None]
  - NEUROPATHY [None]
